FAERS Safety Report 8096568-7 (Version None)
Quarter: 2012Q1

REPORT INFORMATION
  Report Type: 
  Country: None (occurrence: None)
  Receive Date: 20120129
  Receipt Date: 20111108
  Transmission Date: 20120608
  Serious: No
  Sender: FDA-Public Use
  Company Number: US-ABBOTT-11P-163-0872616-00

PATIENT
  Sex: Female
  Weight: 68.1 kg

DRUGS (4)
  1. HUMIRA [Suspect]
     Indication: CROHN'S DISEASE
     Dosage: TOTAL DOSE ADMIN 160 MG OVER 2 DAYS
     Dates: start: 20110901, end: 20110901
  2. HUMIRA [Suspect]
     Dosage: TOTAL DOSE ADMIN 80 MG OVER 1 DAYS
  3. HUMIRA [Suspect]
     Dosage: MAINTENANCE DOSE
  4. PENTASA [Concomitant]
     Indication: CROHN'S DISEASE

REACTIONS (2)
  - MENSTRUATION DELAYED [None]
  - VERTIGO [None]
